FAERS Safety Report 5498601-5 (Version None)
Quarter: 2007Q4

REPORT INFORMATION
  Report Type: 
  Country: None (occurrence: None)
  Receive Date: 20071025
  Receipt Date: 20071025
  Transmission Date: 20080405
  Serious: Yes (Hospitalization)
  Sender: FDA-Public Use
  Company Number: None

PATIENT
  Sex: Male
  Weight: 79 kg

DRUGS (4)
  1. BEVACIZUMAB Q 3 WEEKS [Suspect]
     Indication: METASTATIC GASTRIC CANCER
     Dosage: 10MG/MG2 IV BOLUS
     Route: 040
     Dates: start: 20070821, end: 20070911
  2. DOCETAXEL [Suspect]
     Indication: METASTATIC GASTRIC CANCER
     Dosage: 30MG/M2 IV BOLUS
     Route: 040
     Dates: start: 20070821, end: 20070918
  3. CISPLATIN [Suspect]
     Indication: METASTATIC GASTRIC CANCER
     Dosage: 25MG/M2 IV BOLUS
     Route: 040
     Dates: start: 20070821, end: 20070918
  4. IRINOTECAN HCL [Suspect]
     Indication: METASTATIC GASTRIC CANCER
     Dosage: 50MG/M2 IV BOLUS
     Route: 040
     Dates: start: 20070821, end: 20070918

REACTIONS (7)
  - DIARRHOEA [None]
  - FATIGUE [None]
  - FEBRILE NEUTROPENIA [None]
  - MUSCLE SPASMS [None]
  - NAUSEA [None]
  - SMALL INTESTINAL OBSTRUCTION [None]
  - VOMITING [None]
